FAERS Safety Report 8893932 (Version 2)
Quarter: 2012Q4

REPORT INFORMATION
  Report Type: 
  Country: FR (occurrence: FR)
  Receive Date: 20121108
  Receipt Date: 20121109
  Transmission Date: 20130627
  Serious: Yes (Other)
  Sender: FDA-Public Use
  Company Number: FR-PFIZER INC-2010003445

PATIENT
  Age: 45 Year
  Sex: Male

DRUGS (1)
  1. CEFPODOXIME [Suspect]
     Indication: INFLUENZA
     Dosage: 100 mg, 2x/day
     Route: 048
     Dates: start: 20091123

REACTIONS (3)
  - Epilepsy [Recovered/Resolved]
  - Vertigo [Unknown]
  - Headache [Unknown]
